FAERS Safety Report 6254939-5 (Version None)
Quarter: 2009Q3

REPORT INFORMATION
  Report Type: 
  Country: None (occurrence: None)
  Receive Date: 20090702
  Receipt Date: 20090622
  Transmission Date: 20100115
  Serious: Yes (Hospitalization)
  Sender: FDA-Public Use
  Company Number: SE-PFIZER INC-2009230031

PATIENT
  Age: 59 Year

DRUGS (5)
  1. LYRICA [Suspect]
     Indication: NEURALGIA
     Dosage: 150 MG, DAILY
     Route: 048
     Dates: start: 20090421, end: 20090507
  2. LYRICA [Suspect]
     Indication: NEURITIS
  3. CLOXACILLIN SODIUM [Suspect]
     Indication: POSTOPERATIVE WOUND INFECTION
     Dosage: 6 MG, UNK
     Route: 042
     Dates: start: 20090417, end: 20090508
  4. OXYCONTIN [Concomitant]
     Route: 065
  5. STESOLID [Concomitant]
     Route: 065

REACTIONS (1)
  - AGRANULOCYTOSIS [None]
